FAERS Safety Report 19686276 (Version 3)
Quarter: 2021Q4

REPORT INFORMATION
  Report Type: Spontaneous
  Country: JP (occurrence: JP)
  Receive Date: 20210811
  Receipt Date: 20211008
  Transmission Date: 20220303
  Serious: Yes (Other)
  Sender: FDA-Public Use
  Company Number: JP-UCBJ-CD202107210UCBPHAPROD

PATIENT
  Age: 3 Decade
  Sex: Female

DRUGS (1)
  1. LEVETIRACETAM [Suspect]
     Active Substance: LEVETIRACETAM
     Indication: Generalised tonic-clonic seizure
     Dosage: 500 MILLIGRAM, 2X/DAY (BID)
     Route: 048

REACTIONS (4)
  - Generalised tonic-clonic seizure [Unknown]
  - Thought blocking [Recovered/Resolved]
  - Insomnia [Unknown]
  - Treatment noncompliance [Unknown]
